FAERS Safety Report 5811175-1 (Version None)
Quarter: 2008Q3

REPORT INFORMATION
  Report Type: 
  Country: None (occurrence: None)
  Receive Date: 20080711
  Receipt Date: 20080331
  Transmission Date: 20090109
  Serious: No
  Sender: FDA-Public Use
  Company Number: 2008BM000068

PATIENT
  Age: 17 Year
  Sex: Female
  Weight: 60 kg

DRUGS (3)
  1. KUVAN [Suspect]
     Indication: PHENYLKETONURIA
     Dosage: 1200 MG;QD;PO
     Route: 048
     Dates: start: 20071001
  2. XANAX [Concomitant]
  3. PROZAC [Concomitant]

REACTIONS (1)
  - DIZZINESS [None]
